FAERS Safety Report 21297494 (Version 1)
Quarter: 2022Q3

REPORT INFORMATION
  Report Type: Spontaneous
  Country: AU (occurrence: None)
  Receive Date: 20220906
  Receipt Date: 20220906
  Transmission Date: 20221026
  Serious: Yes (Other)
  Sender: FDA-Public Use
  Company Number: 2022A306799

PATIENT
  Sex: Female

DRUGS (8)
  1. FULVESTRANT [Suspect]
     Active Substance: FULVESTRANT
     Indication: Breast cancer metastatic
     Route: 030
     Dates: start: 202009, end: 202105
  2. TAMOXIFEN [Suspect]
     Active Substance: TAMOXIFEN
     Indication: Breast cancer female
     Route: 048
     Dates: start: 1998
  3. PACLITAXEL [Concomitant]
     Active Substance: PACLITAXEL
  4. LETROZOLE [Concomitant]
     Active Substance: LETROZOLE
     Route: 065
     Dates: start: 201805
  5. RIBOCICLIB [Concomitant]
     Active Substance: RIBOCICLIB
     Route: 065
     Dates: start: 201805
  6. EXEMESTANE [Concomitant]
     Active Substance: EXEMESTANE
     Dates: start: 202105
  7. ERIBULIN [Concomitant]
     Active Substance: ERIBULIN
  8. DOXORUBICIN HYDROCHLORIDE [Concomitant]
     Active Substance: DOXORUBICIN HYDROCHLORIDE
     Dates: start: 202108

REACTIONS (3)
  - Malignant neoplasm progression [Unknown]
  - Pleural effusion [Unknown]
  - Pulmonary mass [Unknown]
